FAERS Safety Report 7151476-0 (Version None)
Quarter: 2010Q4

REPORT INFORMATION
  Report Type: 
  Country: None (occurrence: None)
  Receive Date: 20101210
  Receipt Date: 20101201
  Transmission Date: 20110411
  Serious: Yes (Hospitalization)
  Sender: FDA-Public Use
  Company Number: DE-PFIZER INC-2010158481

PATIENT
  Age: 68 Year
  Sex: Male

DRUGS (6)
  1. SUTENT [Suspect]
     Dosage: DOSE ACCORDING TO PROTOCOL
     Dates: start: 20100608
  2. TAMSULOSIN [Concomitant]
     Dosage: 0.4 MG, 1X/DAY
     Dates: start: 20040101
  3. BISOPROLOL [Concomitant]
     Dosage: 10 MG, 1X/DAY
     Dates: start: 20020101
  4. AMLODIPINE [Concomitant]
     Dosage: 5 MG, 1X/DAY
     Dates: start: 20020101
  5. OMEPRAZOLE [Concomitant]
     Dosage: 10 MG, 1X/DAY
     Dates: start: 20100608
  6. ZOMETA [Concomitant]
     Dosage: UNK
     Dates: start: 20100601

REACTIONS (1)
  - HYDROCHOLECYSTIS [None]
